FAERS Safety Report 8529766-6 (Version None)
Quarter: 2012Q3

REPORT INFORMATION
  Report Type: 
  Country: None (occurrence: None)
  Receive Date: 20120723
  Receipt Date: 20120711
  Transmission Date: 20120928
  Serious: Yes (Other)
  Sender: FDA-Public Use
  Company Number: JP-JNJFOC-20120707732

PATIENT

DRUGS (3)
  1. RISPERDAL [Suspect]
     Route: 048
     Dates: start: 20120501
  2. RISPERDAL [Suspect]
     Indication: PRODUCT USED FOR UNKNOWN INDICATION
     Route: 048
     Dates: start: 20120601
  3. RISPERDAL [Suspect]
     Route: 048
     Dates: start: 20120701

REACTIONS (10)
  - NAUSEA [None]
  - TREMOR [None]
  - SUICIDAL IDEATION [None]
  - YAWNING [None]
  - IRRITABILITY [None]
  - EYE MOVEMENT DISORDER [None]
  - PANIC REACTION [None]
  - DECREASED APPETITE [None]
  - WITHDRAWAL SYNDROME [None]
  - DIARRHOEA [None]
